FAERS Safety Report 16409192 (Version 2)
Quarter: 2019Q2

REPORT INFORMATION
  Report Type: Spontaneous
  Country: DE (occurrence: DE)
  Receive Date: 20190610
  Receipt Date: 20190612
  Transmission Date: 20190711
  Serious: Yes (Other)
  Sender: FDA-Public Use
  Company Number: DE-AUROBINDO-AUR-APL-2019-021267

PATIENT

DRUGS (16)
  1. RITUXIMAB. [Suspect]
     Active Substance: RITUXIMAB
     Dosage: 1000 MILLIGRAM/KILOGRAM, 8 WEEK, MAINTENANCE THERAPY
     Route: 042
  2. DOXORUBICIN [Suspect]
     Active Substance: DOXORUBICIN
     Indication: MANTLE CELL LYMPHOMA STAGE IV
     Dosage: UNK, 3 CYCLE, PART OF MAXI-CHOP REGIMEN
     Route: 065
     Dates: start: 2016
  3. PREDNISOLONE. [Suspect]
     Active Substance: PREDNISOLONE
     Indication: MANTLE CELL LYMPHOMA STAGE IV
     Dosage: UNK, 3 CYCLE, PART OF MAXI-CHOP REGIMEN
     Route: 065
     Dates: start: 2016
  4. ADALIMUMAB [Suspect]
     Active Substance: ADALIMUMAB
     Indication: PRODUCT USED FOR UNKNOWN INDICATION
     Dosage: UNK
     Route: 065
     Dates: start: 2012
  5. VINCRISTINE [Suspect]
     Active Substance: VINCRISTINE
     Indication: MANTLE CELL LYMPHOMA STAGE IV
     Dosage: UNK, 3 CYCLE, PART OF MAXI-CHOP REGIMEN
     Route: 065
     Dates: start: 2016
  6. CYCLOPHOSPHAMIDE. [Suspect]
     Active Substance: CYCLOPHOSPHAMIDE
     Indication: MANTLE CELL LYMPHOMA STAGE IV
     Dosage: UNK, 3 CYCLES, PART OF MAXI-CHOP REGIMEN
     Route: 065
     Dates: start: 2016
  7. CYTARABINE. [Suspect]
     Active Substance: CYTARABINE
     Indication: MANTLE CELL LYMPHOMA STAGE IV
     Dosage: UNK, 3 CYCLE HIGH-DOSE BEAM REGIMEN
     Route: 065
     Dates: start: 2016
  8. CYTARABINE. [Suspect]
     Active Substance: CYTARABINE
     Dosage: UNK, CYCLE
     Route: 065
     Dates: start: 2016
  9. APREMILAST [Concomitant]
     Active Substance: APREMILAST
     Indication: PRODUCT USED FOR UNKNOWN INDICATION
     Dosage: 60 MILLIGRAM, DAILY
     Route: 065
  10. MELPHALAN. [Suspect]
     Active Substance: MELPHALAN
     Indication: MANTLE CELL LYMPHOMA STAGE IV
     Dosage: UNK, RECEIVED THREE CYCLES; PART OF HIGH-DOSE BEAM REGIMEN
     Route: 065
     Dates: start: 2016
  11. ADALIMUMAB [Suspect]
     Active Substance: ADALIMUMAB
     Indication: PSORIATIC ARTHROPATHY
  12. DITHRANOL [Concomitant]
     Active Substance: ANTHRALIN
     Indication: PRODUCT USED FOR UNKNOWN INDICATION
     Dosage: UNK
     Route: 065
  13. RITUXIMAB. [Suspect]
     Active Substance: RITUXIMAB
     Indication: MANTLE CELL LYMPHOMA STAGE IV
     Dosage: UNK, 3 CYCLE
     Route: 042
     Dates: start: 2016
  14. ETOPOSIDE. [Suspect]
     Active Substance: ETOPOSIDE
     Indication: MANTLE CELL LYMPHOMA STAGE IV
     Dosage: UNK, RECEIVED THREE CYCLES; PART OF HIGH-DOSE BEAM REGIMEN
     Route: 065
  15. ADALIMUMAB [Suspect]
     Active Substance: ADALIMUMAB
     Indication: PSORIASIS
  16. BICNU [Suspect]
     Active Substance: CARMUSTINE
     Indication: MANTLE CELL LYMPHOMA STAGE IV
     Dosage: UNK, RECEIVED THREE CYCLES; PART OF HIGH-DOSE BEAM REGIMEN
     Route: 065
     Dates: start: 2016

REACTIONS (14)
  - Aspergillus infection [Recovered/Resolved]
  - Mantle cell lymphoma stage IV [Recovered/Resolved]
  - Febrile neutropenia [Recovered/Resolved]
  - Hepatic infection fungal [Recovered/Resolved]
  - Bronchopulmonary aspergillosis [Recovered/Resolved]
  - Psoriasis [Recovering/Resolving]
  - Product use in unapproved indication [Unknown]
  - Lymphopenia [Unknown]
  - Herpes zoster [Recovered/Resolved]
  - Pancytopenia [Recovered/Resolved]
  - Retinal haemorrhage [Recovered/Resolved]
  - Toxicity to various agents [Unknown]
  - Thrombocytopenia [Unknown]
  - Psoriatic arthropathy [Recovered/Resolved]

NARRATIVE: CASE EVENT DATE: 2016
